FAERS Safety Report 5176425-6 (Version None)
Quarter: 2006Q4

REPORT INFORMATION
  Report Type: 
  Country: None (occurrence: None)
  Receive Date: 20061207
  Receipt Date: 20061129
  Transmission Date: 20070319
  Serious: Yes (Death, Life-Threatening, Disabling, Other)
  Sender: FDA-Public Use
  Company Number: 2003-10-0459

PATIENT
  Age: 45 Year
  Sex: Male
  Weight: 78 kg

DRUGS (4)
  1. VIRAFERONPEG [Suspect]
     Indication: HEPATITIS C
     Dosage: 90 + 80 MCG; QW; UNKNOWN
     Dates: end: 20030704
  2. VIRAFERONPEG [Suspect]
     Indication: HEPATITIS C
     Dosage: 90 + 80 MCG; QW; UNKNOWN
     Dates: start: 20021227
  3. REBETOL [Suspect]
     Indication: HEPATITIS C
     Dosage: 1200 + 100 MG/QD; UNKNOWN
     Dates: start: 20021227, end: 20030404
  4. REBETOL [Suspect]
     Indication: HEPATITIS C
     Dosage: 1200 + 100 MG/QD; UNKNOWN
     Dates: start: 20030404, end: 20030708

REACTIONS (8)
  - CARDIOGENIC SHOCK [None]
  - CONGESTIVE CARDIOMYOPATHY [None]
  - FATIGUE [None]
  - INFLAMMATION [None]
  - PLEURAL EFFUSION [None]
  - PULMONARY HYPERTENSION [None]
  - VIRAL INFECTION [None]
  - WEIGHT DECREASED [None]
